FAERS Safety Report 5155383-4 (Version None)
Quarter: 2006Q4

REPORT INFORMATION
  Report Type: 
  Country: None (occurrence: None)
  Receive Date: 20061114
  Receipt Date: 20061101
  Transmission Date: 20070319
  Serious: Yes (Other)
  Sender: FDA-Public Use
  Company Number: 2006092506

PATIENT
  Sex: Female
  Weight: 64.8644 kg

DRUGS (5)
  1. CELEBREX [Suspect]
     Indication: NECK PAIN
     Dates: start: 19990101
  2. CELEBREX [Suspect]
     Indication: PAIN IN EXTREMITY
     Dates: start: 19990101
  3. ATENOLOL [Concomitant]
  4. SIMVASTATIN [Concomitant]
  5. FEMARA [Concomitant]

REACTIONS (3)
  - BREAST CANCER STAGE III [None]
  - DRUG INEFFECTIVE [None]
  - INTERVERTEBRAL DISC PROTRUSION [None]
